FAERS Safety Report 7084136-5 (Version None)
Quarter: 2010Q4

REPORT INFORMATION
  Report Type: 
  Country: None (occurrence: None)
  Receive Date: 20101104
  Receipt Date: 20100416
  Transmission Date: 20110411
  Serious: Yes (Hospitalization)
  Sender: FDA-Public Use
  Company Number: US-BAYER-201017907NA

PATIENT
  Age: 34 Year
  Sex: Female
  Weight: 70 kg

DRUGS (17)
  1. YAZ [Suspect]
     Indication: MENSTRUAL CYCLE MANAGEMENT
     Route: 048
     Dates: start: 20071001, end: 20080301
  2. DOCUSATE SODIUM W/SENNA [Concomitant]
     Indication: CONSTIPATION
     Route: 048
  3. ONDANSETRON [Concomitant]
     Indication: VOMITING
  4. IBUPROFEN [Concomitant]
     Dates: start: 20080501
  5. WARFARIN SODIUM [Concomitant]
     Dates: start: 20080401, end: 20080901
  6. AMOXICILLIN AND CLAVULANATE POTASSIUM [Concomitant]
     Dates: start: 20080801
  7. METRONIDAZOLE [Concomitant]
     Dates: start: 20080901
  8. BENZONATATE [Concomitant]
     Dates: start: 20080101
  9. MULTI-VITAMIN [Concomitant]
     Route: 048
     Dates: start: 20080201, end: 20080301
  10. FOLIC ACID [Concomitant]
     Route: 048
     Dates: start: 20080201, end: 20080301
  11. LUTERA-28 [Concomitant]
     Dates: start: 20080401
  12. LOVENOX [Concomitant]
     Dates: start: 20080401
  13. TRAMADOL HCL [Concomitant]
     Dates: start: 20080401
  14. HYDROCODONE [Concomitant]
     Dates: start: 20080401
  15. AZITHROMYCIN [Concomitant]
     Dates: start: 20080501
  16. CLARITHROMYCIN [Concomitant]
     Dates: start: 20080601
  17. ACETAMINOPHEN [Concomitant]
     Dosage: 325 AND 650 MG
     Route: 048

REACTIONS (3)
  - CHEST PAIN [None]
  - DYSPNOEA [None]
  - PULMONARY EMBOLISM [None]
